FAERS Safety Report 16252822 (Version 4)
Quarter: 2019Q2

REPORT INFORMATION
  Report Type: Spontaneous
  Country: US (occurrence: US)
  Receive Date: 20190429
  Receipt Date: 20190607
  Transmission Date: 20190711
  Serious: No
  Sender: FDA-Public Use
  Company Number: US-GILEAD-2019-0403873

PATIENT
  Age: 43 Year
  Sex: Male
  Weight: 67.57 kg

DRUGS (1)
  1. BIKTARVY [Suspect]
     Active Substance: BICTEGRAVIR SODIUM\EMTRICITABINE\TENOFOVIR ALAFENAMIDE FUMARATE
     Indication: HIV INFECTION
     Dosage: 1 DOSAGE FORM
     Route: 048
     Dates: start: 20181213

REACTIONS (18)
  - Arthralgia [Not Recovered/Not Resolved]
  - Hyperaesthesia [Unknown]
  - Gait disturbance [Unknown]
  - Lower respiratory tract congestion [Not Recovered/Not Resolved]
  - Burning sensation [Recovered/Resolved]
  - Pain in extremity [Unknown]
  - Muscle spasms [Unknown]
  - Myalgia [Not Recovered/Not Resolved]
  - Influenza like illness [Unknown]
  - Blood HIV RNA increased [Not Recovered/Not Resolved]
  - Hyperhidrosis [Recovered/Resolved]
  - Hypoaesthesia [Unknown]
  - Hot flush [Recovered/Resolved]
  - Dyspnoea [Unknown]
  - Wheezing [Unknown]
  - Burning sensation [Unknown]
  - Neck pain [Recovered/Resolved]
  - Headache [Recovered/Resolved]

NARRATIVE: CASE EVENT DATE: 201812
